FAERS Safety Report 8486652-8 (Version None)
Quarter: 2012Q3

REPORT INFORMATION
  Report Type: 
  Country: None (occurrence: None)
  Receive Date: 20120703
  Receipt Date: 20120628
  Transmission Date: 20120928
  Serious: Yes (Death)
  Sender: FDA-Public Use
  Company Number: JP-ROCHE-1053462

PATIENT
  Sex: Female

DRUGS (12)
  1. MONTELUKAST SODIUM [Concomitant]
     Dates: start: 20090724
  2. ALLEGRA [Concomitant]
     Dates: start: 20091202
  3. SALMETEROL XINAFOATE [Concomitant]
  4. HIRNAMIN [Concomitant]
     Dates: start: 20050101
  5. PROCATEROL HCL [Concomitant]
     Dates: start: 20110527
  6. LYRICA [Concomitant]
     Dates: start: 20111003
  7. NEUROTROPIN [Concomitant]
  8. SILECE [Concomitant]
     Dates: start: 20050101
  9. PREDNISOLONE [Concomitant]
  10. OMALIZUMAB [Suspect]
     Indication: PRODUCT USED FOR UNKNOWN INDICATION
     Dosage: LAST DOSE PRIOR TO SAE ON 24/JAN/2012
     Route: 058
     Dates: start: 20111115
  11. ACETAMINOPHEN [Concomitant]
  12. RISPERDAL [Concomitant]
     Dates: start: 20050101

REACTIONS (3)
  - CARDIO-RESPIRATORY ARREST [None]
  - COMPLETED SUICIDE [None]
  - ASPHYXIA [None]
